FAERS Safety Report 4269789-9 (Version None)
Quarter: 2004Q1

REPORT INFORMATION
  Report Type: 
  Country: None (occurrence: None)
  Receive Date: 20040113
  Receipt Date: 20040105
  Transmission Date: 20041129
  Serious: Yes (Other)
  Sender: FDA-Public Use
  Company Number: 04-01-0024

PATIENT
  Age: 54 Year
  Sex: Female

DRUGS (1)
  1. CLOZAPINE [Suspect]
     Dosage: 300-550MG QD ORAL
     Route: 048
     Dates: start: 20000601

REACTIONS (2)
  - LEUKAEMIA [None]
  - WHITE BLOOD CELL COUNT DECREASED [None]
